FAERS Safety Report 21790714 (Version 1)
Quarter: 2022Q4

REPORT INFORMATION
  Report Type: Report from Study
  Country: US (occurrence: US)
  Receive Date: 20221228
  Receipt Date: 20221228
  Transmission Date: 20230113
  Serious: No
  Sender: FDA-Public Use
  Company Number: US-CLOVIS ONCOLOGY-CLO-2022-001042

PATIENT
  Sex: Female

DRUGS (2)
  1. RUBRACA [Suspect]
     Active Substance: RUCAPARIB CAMSYLATE
     Indication: Ovarian cancer
     Dosage: 600 MILLIGRAM, BID
     Route: 048
     Dates: start: 20220914, end: 20221123
  2. RUBRACA [Suspect]
     Active Substance: RUCAPARIB CAMSYLATE
     Dosage: 600 MILLIGRAM, BID
     Route: 048
     Dates: start: 202209

REACTIONS (14)
  - Pain [Unknown]
  - Night sweats [Not Recovered/Not Resolved]
  - Influenza [Unknown]
  - Weight decreased [Unknown]
  - Depression [Unknown]
  - Middle insomnia [Unknown]
  - Abdominal pain [Recovered/Resolved]
  - Abdominal pain [Recovering/Resolving]
  - Abdominal pain upper [Unknown]
  - Diarrhoea [Recovered/Resolved]
  - Taste disorder [Not Recovered/Not Resolved]
  - Decreased appetite [Not Recovered/Not Resolved]
  - White blood cell count decreased [Unknown]
  - Red blood cell count decreased [Unknown]

NARRATIVE: CASE EVENT DATE: 20220101
